FAERS Safety Report 4726267-8 (Version None)
Quarter: 2005Q3

REPORT INFORMATION
  Report Type: 
  Country: None (occurrence: None)
  Receive Date: 20050727
  Receipt Date: 20000128
  Transmission Date: 20060218
  Serious: Yes (Disabling)
  Sender: FDA-Public Use
  Company Number: F/00/00217/SYT

PATIENT
  Age: 40 Year
  Sex: Female

DRUGS (2)
  1. SYNTOCINON [Suspect]
     Indication: ABORTION
     Dosage: UNSPECIFIED
     Route: 042
     Dates: start: 19911201
  2. METHERGINE [Suspect]
     Indication: UTERINE HAEMORRHAGE
     Route: 015
     Dates: start: 19911201, end: 19911201

REACTIONS (4)
  - CEREBELLAR SYNDROME [None]
  - COMA [None]
  - DISSEMINATED INTRAVASCULAR COAGULATION [None]
  - UTERINE HAEMORRHAGE [None]
